FAERS Safety Report 16090892 (Version 1)
Quarter: 2019Q1

REPORT INFORMATION
  Report Type: Spontaneous
  Country: CN (occurrence: CN)
  Receive Date: 20190319
  Receipt Date: 20190319
  Transmission Date: 20190418
  Serious: Yes (Other)
  Sender: FDA-Public Use
  Company Number: CN-PFIZER INC-2019111841

PATIENT
  Age: 39 Year
  Sex: Female
  Weight: 53 kg

DRUGS (5)
  1. CYCLOPHOSPHAMIDE. [Suspect]
     Active Substance: CYCLOPHOSPHAMIDE
     Indication: CHEMOTHERAPY
     Dosage: UNK UNK, CYCLIC
     Route: 042
  2. PHARMORUBICIN [Suspect]
     Active Substance: EPIRUBICIN
     Indication: CHEMOTHERAPY
     Dosage: UNK UNK, CYCLIC
     Route: 042
  3. CYCLOPHOSPHAMIDE. [Suspect]
     Active Substance: CYCLOPHOSPHAMIDE
     Dosage: 800 MG, CYCLIC (1X/DAY)
     Route: 042
     Dates: start: 20190103, end: 20190103
  4. PHARMORUBICIN [Suspect]
     Active Substance: EPIRUBICIN
     Dosage: 130 MG, CYCLIC (1X/DAY)
     Route: 042
     Dates: start: 20190103, end: 20190103
  5. SODIUM CHLORIDE. [Concomitant]
     Active Substance: SODIUM CHLORIDE
     Indication: VEHICLE SOLUTION USE
     Dosage: 50 ML, 1X/DAY
     Route: 042
     Dates: start: 20190103, end: 20190103

REACTIONS (2)
  - Granulocyte count decreased [Unknown]
  - Liver injury [Unknown]

NARRATIVE: CASE EVENT DATE: 20190110
